FAERS Safety Report 16278452 (Version 1)
Quarter: 2019Q2

REPORT INFORMATION
  Report Type: Spontaneous
  Country: MX (occurrence: MX)
  Receive Date: 20190506
  Receipt Date: 20190506
  Transmission Date: 20190711
  Serious: Yes (Other)
  Sender: FDA-Public Use
  Company Number: MX-ASTRAZENECA-2019SE68717

PATIENT
  Age: 15618 Day
  Sex: Female
  Weight: 60 kg

DRUGS (5)
  1. NATURALAG [Concomitant]
     Indication: DRY EYE
     Dosage: UNKNOWN
     Route: 047
     Dates: start: 20180101
  2. FENITOINA [Concomitant]
     Active Substance: PHENYTOIN
     Dosage: UNKNOWN
     Route: 065
     Dates: start: 20181222, end: 20181229
  3. LYNPARZA [Suspect]
     Active Substance: OLAPARIB
     Indication: BREAST CANCER
     Route: 048
     Dates: start: 20181222
  4. ATEMPERATOR [Concomitant]
     Indication: SEIZURE
     Route: 048
     Dates: start: 20181208
  5. ARANTO TEA [Concomitant]
     Indication: NEOPLASM MALIGNANT
     Dosage: UNKNOWN
     Route: 048
     Dates: start: 20180501

REACTIONS (6)
  - Dry eye [Not Recovered/Not Resolved]
  - Eye pruritus [Not Recovered/Not Resolved]
  - Weight decreased [Not Recovered/Not Resolved]
  - Contraindicated product administered [Recovered/Resolved]
  - Pruritus [Not Recovered/Not Resolved]
  - Dry mouth [Not Recovered/Not Resolved]

NARRATIVE: CASE EVENT DATE: 20181223
